FAERS Safety Report 9918765 (Version 2)
Quarter: 2014Q1

REPORT INFORMATION
  Report Type: Spontaneous
  Country: ZA (occurrence: ZA)
  Receive Date: 20140224
  Receipt Date: 20140305
  Transmission Date: 20141002
  Serious: Yes (Hospitalization, Other)
  Sender: FDA-Public Use
  Company Number: ZA-ELI_LILLY_AND_COMPANY-ZA201402004663

PATIENT
  Sex: Male

DRUGS (7)
  1. CYMBALTA [Suspect]
     Indication: NEURALGIA
     Dosage: 30 MG, UNKNOWN
     Route: 065
     Dates: start: 20140210
  2. VALOID /00014902/ [Suspect]
     Indication: PRODUCT USED FOR UNKNOWN INDICATION
     Dosage: 50 MG, UNKNOWN
     Route: 065
  3. OCTAGAM                            /00025201/ [Concomitant]
     Dosage: UNK, MONTHLY (1/M)
     Route: 065
  4. BACTRIM DS [Concomitant]
     Dosage: 1 DF, BID
  5. PRADAXA [Concomitant]
     Dosage: 110 MG, BID
     Route: 065
  6. PRITOR                             /01102601/ [Concomitant]
     Dosage: 20 MG, QD
     Route: 065
  7. NEXIUM                             /01479302/ [Concomitant]
     Dosage: 40 MG, QD
     Route: 065

REACTIONS (18)
  - Hypernatraemia [Recovered/Resolved]
  - Anaphylactic reaction [Recovered/Resolved]
  - Extrapyramidal disorder [Recovered/Resolved]
  - Restless legs syndrome [Recovered/Resolved]
  - Arterial disorder [Recovered/Resolved]
  - Off label use [Recovered/Resolved]
  - Nausea [Recovered/Resolved]
  - Fatigue [Recovered/Resolved]
  - Malaise [Recovered/Resolved]
  - Vision blurred [Recovered/Resolved]
  - Mydriasis [Recovered/Resolved]
  - Blood pressure increased [Recovered/Resolved]
  - Paraesthesia [Recovered/Resolved]
  - Insomnia [Recovered/Resolved]
  - Hallucination [Recovered/Resolved]
  - Urinary hesitation [Recovered/Resolved]
  - Night sweats [Recovered/Resolved]
  - Peripheral coldness [Recovered/Resolved]
